FAERS Safety Report 6966821-6 (Version None)
Quarter: 2010Q3

REPORT INFORMATION
  Report Type: 
  Country: None (occurrence: None)
  Receive Date: 20100906
  Receipt Date: 20100824
  Transmission Date: 20110219
  Serious: Yes (Other)
  Sender: FDA-Public Use
  Company Number: PHHY2009CA59564

PATIENT
  Sex: Female

DRUGS (3)
  1. LOPRESSOR [Suspect]
  2. HYZAAR [Suspect]
  3. ASPIRIN [Suspect]

REACTIONS (3)
  - DRUG DOSE OMISSION [None]
  - HEART RATE INCREASED [None]
  - PALPITATIONS [None]
